FAERS Safety Report 6189256-5 (Version None)
Quarter: 2009Q2

REPORT INFORMATION
  Report Type: 
  Country: None (occurrence: None)
  Receive Date: 20090513
  Receipt Date: 20090507
  Transmission Date: 20091009
  Serious: Yes (Hospitalization, Other)
  Sender: FDA-Public Use
  Company Number: PHHO2008DE10918

PATIENT
  Sex: Female
  Weight: 67 kg

DRUGS (3)
  1. ZOLEDRONIC ACID [Suspect]
     Indication: BREAST CANCER
     Dosage: 4MG
     Route: 042
     Dates: start: 20070413, end: 20080606
  2. CALCIUM [Concomitant]
  3. VITAMIN D [Concomitant]

REACTIONS (7)
  - BACK PAIN [None]
  - MALIGNANT NEOPLASM PROGRESSION [None]
  - METASTASES TO BONE [None]
  - METASTASES TO LYMPH NODES [None]
  - METASTASES TO MENINGES [None]
  - METASTASES TO SPINE [None]
  - METASTASES TO TRACHEA [None]
